FAERS Safety Report 24788057 (Version 1)
Quarter: 2024Q4

REPORT INFORMATION
  Report Type: Spontaneous
  Country: US (occurrence: None)
  Receive Date: 20241227
  Receipt Date: 20241227
  Transmission Date: 20250114
  Serious: No
  Sender: Public
  Company Number: None

PATIENT
  Age: 41 Year
  Sex: Female

DRUGS (11)
  1. AMBRISENTAN [Suspect]
     Active Substance: AMBRISENTAN
     Indication: Pulmonary arterial hypertension
     Dosage: 1 TABLET DAILY ORAL?
     Route: 048
     Dates: start: 20220114
  2. WINREVAIR/MUCINEX [Concomitant]
  3. TORSEMIDE/PEPCID [Concomitant]
  4. ABILFY [Concomitant]
  5. PAXLOVID [Concomitant]
     Active Substance: NIRMATRELVIR\RITONAVIR
  6. CEFAZOLIN [Concomitant]
     Active Substance: CEFAZOLIN
  7. TADALAFIL [Concomitant]
     Active Substance: TADALAFIL
  8. UPTRAVI [Concomitant]
     Active Substance: SELEXIPAG
  9. FUROSEMIDE [Concomitant]
     Active Substance: FUROSEMIDE
  10. POTASSIUM [Concomitant]
     Active Substance: POTASSIUM
  11. MAGNESIUM [Concomitant]
     Active Substance: MAGNESIUM

REACTIONS (1)
  - Weight increased [None]

NARRATIVE: CASE EVENT DATE: 20241227
